FAERS Safety Report 6294792-7 (Version None)
Quarter: 2009Q3

REPORT INFORMATION
  Report Type: 
  Country: None (occurrence: None)
  Receive Date: 20090730
  Receipt Date: 20081017
  Transmission Date: 20100115
  Serious: No
  Sender: FDA-Public Use
  Company Number: 2008-1529 (0)

PATIENT
  Age: 63 Year
  Sex: Male
  Weight: 108.8 kg

DRUGS (7)
  1. LANREOTIDE AUTOGEL (LANREOTIDE) (LANREOTIDE ACETATE) [Suspect]
     Dosage: (120 MG, ONCE A MONTH), SUBCUTANEOUS
     Route: 058
     Dates: start: 20080914
  2. ANDRO DERM PATCH (TESTOSTERONE) [Concomitant]
  3. LEVOXYL [Concomitant]
  4. BROMOCRYPTINE (BROMOCRIPTINE) [Concomitant]
  5. DESMOPRESSIN ACETATE [Concomitant]
  6. HYDROCORTONE [Concomitant]
  7. VITAMIN D [Concomitant]

REACTIONS (1)
  - INJECTION SITE PAIN [None]
